FAERS Safety Report 16131131 (Version 1)
Quarter: 2019Q1

REPORT INFORMATION
  Report Type: Spontaneous
  Country: US (occurrence: US)
  Receive Date: 20190223
  Receipt Date: 20190223
  Transmission Date: 20190418
  Serious: No
  Sender: FDA-Public Use
  Company Number: None

PATIENT
  Age: 67 Year
  Sex: Male

DRUGS (1)
  1. APIXABAN [Suspect]
     Active Substance: APIXABAN
     Indication: ATRIAL FIBRILLATION
     Route: 048
     Dates: start: 20181030, end: 20181125

REACTIONS (6)
  - Gastrointestinal haemorrhage [None]
  - Gastric polyps [None]
  - Acute kidney injury [None]
  - Chronic kidney disease [None]
  - Chronic left ventricular failure [None]
  - Anaemia [None]

NARRATIVE: CASE EVENT DATE: 20181126
